FAERS Safety Report 9449495 (Version 2)
Quarter: 2013Q4

REPORT INFORMATION
  Report Type: Spontaneous
  Country: IT (occurrence: IT)
  Receive Date: 20130809
  Receipt Date: 20131016
  Transmission Date: 20140711
  Serious: Yes (Hospitalization, Other)
  Sender: FDA-Public Use
  Company Number: IT-009507513-1308ITA002927

PATIENT
  Age: 71 Year
  Sex: Female
  Weight: 56 kg

DRUGS (5)
  1. EMEND [Suspect]
     Indication: PREMEDICATION
     Dosage: 1 DF, CYCLICAL
     Route: 048
     Dates: start: 20130405, end: 20130406
  2. ALOXI [Suspect]
     Indication: PREMEDICATION
     Dosage: 1 DF (250 MCG), CYCLICAL
     Route: 042
     Dates: start: 20130405, end: 20130405
  3. EPIRUBICIN HYDROCHLORIDE [Concomitant]
     Indication: INVASIVE DUCTAL BREAST CARCINOMA
     Dosage: 135 MG, UNK
     Route: 042
     Dates: start: 20130117, end: 20130405
  4. ENDOXAN [Concomitant]
     Indication: INVASIVE DUCTAL BREAST CARCINOMA
     Dosage: 900 MG, UNK
     Route: 042
     Dates: start: 20130117, end: 20130405
  5. NEORECORMON [Concomitant]
     Indication: ANAEMIA
     Dosage: UNK
     Dates: start: 201303, end: 20130418

REACTIONS (2)
  - Ileus paralytic [Recovered/Resolved]
  - Intestinal obstruction [Recovered/Resolved]
